FAERS Safety Report 4768431-8 (Version None)
Quarter: 2005Q3

REPORT INFORMATION
  Report Type: 
  Country: None (occurrence: None)
  Receive Date: 20050914
  Receipt Date: 20050906
  Transmission Date: 20060218
  Serious: Yes (Other)
  Sender: FDA-Public Use
  Company Number: HU-ROCHE-416553

PATIENT
  Age: 55 Year
  Sex: Male

DRUGS (1)
  1. ROACCUTAN [Suspect]
     Route: 048
     Dates: start: 20030306, end: 20050907

REACTIONS (2)
  - INSOMNIA [None]
  - VERTIGO [None]
